FAERS Safety Report 6415990-5 (Version None)
Quarter: 2009Q4

REPORT INFORMATION
  Report Type: 
  Country: None (occurrence: None)
  Receive Date: 20091027
  Receipt Date: 20091020
  Transmission Date: 20100525
  Serious: Yes (Hospitalization)
  Sender: FDA-Public Use
  Company Number: US-JNJFOC-20091007032

PATIENT
  Sex: Female

DRUGS (3)
  1. DURAGESIC-100 [Suspect]
     Indication: PAIN
     Dosage: 3 PATCHES OF 100 UG/HR
     Route: 062
  2. OXYCODONE [Concomitant]
     Indication: PAIN
     Route: 048
  3. ACTIQ [Concomitant]
     Indication: PAIN
     Route: 050

REACTIONS (2)
  - INCORRECT DRUG ADMINISTRATION DURATION [None]
  - SURGERY [None]
